FAERS Safety Report 7504236-2 (Version None)
Quarter: 2011Q2

REPORT INFORMATION
  Report Type: 
  Country: None (occurrence: None)
  Receive Date: 20110525
  Receipt Date: 20090930
  Transmission Date: 20111010
  Serious: Yes (Death, Other)
  Sender: FDA-Public Use
  Company Number: US-BAYER-200934534NA

PATIENT
  Age: 78 Year
  Sex: Male
  Weight: 73 kg

DRUGS (13)
  1. CISATRACURIUM BESYLATE [Concomitant]
     Dosage: 27 MG/H, UNK
     Route: 042
     Dates: start: 20040323, end: 20040323
  2. VANCOMYCIN [Concomitant]
     Dosage: 1000 MG, UNK
     Route: 042
     Dates: start: 20040323, end: 20040323
  3. TRASYLOL [Suspect]
     Indication: MITRAL VALVE REPAIR
  4. TRASYLOL [Suspect]
     Indication: CORONARY ARTERY BYPASS
     Dosage: 10000 KIU, UNK
     Route: 042
     Dates: start: 20040323, end: 20040323
  5. PAPAVERINE [Concomitant]
     Dosage: 120 MG, UNK
     Route: 061
  6. LEVOPHED [Concomitant]
     Route: 042
  7. PROTAMINE SULFATE [Concomitant]
     Dosage: 500 MG, UNK
     Route: 042
     Dates: start: 20040323, end: 20040323
  8. EPHEDRINE [Concomitant]
     Dosage: 20 MG, UNK
     Route: 042
     Dates: start: 20040323, end: 20040323
  9. MIDAZOLAM HCL [Concomitant]
     Dosage: 5 MG, UNK
     Route: 042
     Dates: start: 20040323, end: 20040323
  10. NOREPINEPHRINE BITARTRATE [Concomitant]
     Dosage: UNK
     Dates: start: 20040323, end: 20040323
  11. LIDOCAINE [Concomitant]
     Dosage: 100 MG, UNK
     Route: 042
     Dates: start: 20040323, end: 20040323
  12. HEPARIN [Concomitant]
     Dosage: 401 UNK, UNK
     Route: 042
     Dates: start: 20040323, end: 20040323
  13. DOPAMINE HCL [Concomitant]
     Dosage: 250 MG, UNK
     Route: 042
     Dates: start: 20040323, end: 20040323

REACTIONS (12)
  - ANXIETY [None]
  - INJURY [None]
  - DEATH [None]
  - PAIN [None]
  - UNEVALUABLE EVENT [None]
  - RENAL INJURY [None]
  - RENAL FAILURE [None]
  - MULTI-ORGAN FAILURE [None]
  - EMOTIONAL DISTRESS [None]
  - STRESS [None]
  - FEAR [None]
  - RENAL IMPAIRMENT [None]
